FAERS Safety Report 15687533 (Version 1)
Quarter: 2018Q4

REPORT INFORMATION
  Report Type: Other
  Country: CN (occurrence: CN)
  Receive Date: 20181205
  Receipt Date: 20181205
  Transmission Date: 20190205
  Serious: Yes (Hospitalization)
  Sender: FDA-Public Use
  Company Number: CN-DEXPHARM-20180912

PATIENT
  Age: 78 Year
  Sex: Female

DRUGS (11)
  1. DIAZEPAM. [Suspect]
     Active Substance: DIAZEPAM
     Indication: GENERALISED TONIC-CLONIC SEIZURE
     Route: 041
  2. VALPORIC ACID [Interacting]
     Active Substance: VALPROIC ACID
     Indication: GENERALISED TONIC-CLONIC SEIZURE
     Dosage: LOADING DOSAGE OF 1200 MG, TOTAL DOSAGE OF APPROXIMATELY 2200 MG
     Route: 041
  3. WARFARIN [Interacting]
     Active Substance: WARFARIN
     Route: 048
  4. METOPROLOL SUCCINATE. [Concomitant]
     Active Substance: METOPROLOL SUCCINATE
     Dosage: 12.5 MG TWICW DAILY AS NEEDED
     Route: 048
  5. LEVETIRACETAM. [Interacting]
     Active Substance: LEVETIRACETAM
     Dosage: 500 MG TWICE DAILY
     Route: 048
  6. VITAMIN K1 [Suspect]
     Active Substance: PHYTONADIONE
     Route: 041
  7. WARFARIN [Suspect]
     Active Substance: WARFARIN
     Indication: PROPHYLAXIS
     Dosage: 1.875 MG DAILY
     Route: 048
  8. WARFARIN [Interacting]
     Active Substance: WARFARIN
  9. WARFARIN [Interacting]
     Active Substance: WARFARIN
  10. ISOSORBIDE MONONITRATE. [Suspect]
     Active Substance: ISOSORBIDE MONONITRATE
     Dosage: 40 MG ORAL ISOSORBIDE MONONITRATE SUSTAINED RELEASE TABLETS ONCE DAILY
     Route: 048
  11. WARFARIN [Interacting]
     Active Substance: WARFARIN
     Route: 048

REACTIONS (3)
  - Renal impairment [Recovered/Resolved]
  - International normalised ratio increased [Recovered/Resolved]
  - Drug interaction [Recovered/Resolved]
